FAERS Safety Report 8455260-7 (Version None)
Quarter: 2012Q2

REPORT INFORMATION
  Report Type: 
  Country: None (occurrence: None)
  Receive Date: 20120621
  Receipt Date: 20120612
  Transmission Date: 20120825
  Serious: Yes (Other)
  Sender: FDA-Public Use
  Company Number: US-ASTRAZENECA-2012SE28384

PATIENT
  Age: 58 Year
  Sex: Male

DRUGS (1)
  1. SEROQUEL XR [Suspect]
     Indication: SLEEP DISORDER
     Route: 048

REACTIONS (5)
  - OFF LABEL USE [None]
  - NEOPLASM MALIGNANT [None]
  - CARDIAC DISORDER [None]
  - PAIN [None]
  - DRUG DOSE OMISSION [None]
